FAERS Safety Report 5764578-8 (Version None)
Quarter: 2008Q2

REPORT INFORMATION
  Report Type: 
  Country: None (occurrence: None)
  Receive Date: 20080604
  Receipt Date: 20080520
  Transmission Date: 20081010
  Serious: Yes (Hospitalization)
  Sender: FDA-Public Use
  Company Number: 2008S1007672

PATIENT
  Age: 30 Year
  Sex: Male

DRUGS (3)
  1. PHENYTOIN SODIUM [Suspect]
     Indication: CONVULSION
     Dosage: 300 MG;DAILY;ORAL : 400 MG;AT BEDTIME;ORAL
     Route: 048
     Dates: end: 20070801
  2. PHENYTOIN SODIUM [Suspect]
     Indication: CONVULSION
     Dosage: 300 MG;DAILY;ORAL : 400 MG;AT BEDTIME;ORAL
     Route: 048
     Dates: start: 20070801
  3. FOLIC ACID [Concomitant]

REACTIONS (3)
  - BALANCE DISORDER [None]
  - FALL [None]
  - THERAPEUTIC AGENT TOXICITY [None]
